FAERS Safety Report 24841511 (Version 2)
Quarter: 2025Q1

REPORT INFORMATION
  Report Type: Spontaneous
  Country: US (occurrence: US)
  Receive Date: 20250114
  Receipt Date: 20250115
  Transmission Date: 20250409
  Serious: Yes (Hospitalization, Other)
  Sender: PFIZER
  Company Number: US-PFIZER INC-202500007813

PATIENT
  Age: 79 Year
  Sex: Female

DRUGS (5)
  1. XELJANZ XR [Suspect]
     Active Substance: TOFACITINIB CITRATE
  2. FOLIC ACID [Concomitant]
     Active Substance: FOLIC ACID
  3. MEDROL [Concomitant]
     Active Substance: METHYLPREDNISOLONE
  4. METHOTREXATE [Concomitant]
     Active Substance: METHOTREXATE
  5. MECLIZINE [Concomitant]
     Active Substance: MECLIZINE HYDROCHLORIDE

REACTIONS (3)
  - COVID-19 [Unknown]
  - Brain fog [Unknown]
  - Dry mouth [Unknown]
